FAERS Safety Report 6469260-X (Version None)
Quarter: 2009Q4

REPORT INFORMATION
  Report Type: 
  Country: None (occurrence: None)
  Receive Date: 20091202
  Receipt Date: 20091202
  Transmission Date: 20100525
  Serious: Yes (Hospitalization)
  Sender: FDA-Public Use
  Company Number: None

PATIENT
  Age: 54 Year
  Sex: Female
  Weight: 66 kg

DRUGS (11)
  1. WARFARIN SODIUM [Suspect]
     Indication: PROPHYLAXIS
     Dosage: 5MG DAILY ORAL
     Route: 048
     Dates: start: 20090901
  2. PANTOPRAZOLE [Concomitant]
  3. ISDN [Concomitant]
  4. METOPROLOL [Concomitant]
  5. CLOPIDOGREL [Concomitant]
  6. METHOTREXATE [Concomitant]
  7. APAP TAB [Concomitant]
  8. IBUPROFEN [Concomitant]
  9. ATOVASTATIN [Concomitant]
  10. ASPIRIN [Concomitant]
  11. CALCIUM [Concomitant]

REACTIONS (1)
  - HAEMARTHROSIS [None]
